FAERS Safety Report 5632821-1 (Version None)
Quarter: 2008Q1

REPORT INFORMATION
  Report Type: 
  Country: None (occurrence: None)
  Receive Date: 20080221
  Receipt Date: 20070814
  Transmission Date: 20080703
  Serious: No
  Sender: FDA-Public Use
  Company Number: A0670196A

PATIENT
  Age: 37 Year
  Sex: Female

DRUGS (4)
  1. DARAPRIM [Suspect]
     Indication: TOXOPLASMOSIS
     Dosage: 200MG SEE DOSAGE TEXT
     Route: 048
     Dates: start: 20070813, end: 20070814
  2. CLINDAMYCIN HCL [Concomitant]
  3. LEUCOVORIN CALCIUM [Concomitant]
  4. PREDNISONE TAB [Concomitant]
     Route: 047

REACTIONS (3)
  - DIZZINESS [None]
  - HYPOAESTHESIA [None]
  - VOMITING [None]
